FAERS Safety Report 9500087 (Version 1)
Quarter: 2013Q3

REPORT INFORMATION
  Report Type: Spontaneous
  Country: US (occurrence: US)
  Receive Date: 20130905
  Receipt Date: 20130905
  Transmission Date: 20140515
  Serious: Yes (Other)
  Sender: FDA-Public Use
  Company Number: PHEH2013US018576

PATIENT
  Sex: 0

DRUGS (2)
  1. EXELON PATCH [Suspect]
     Dosage: UNK UKN, UNK
     Route: 062
  2. NAMENDA [Concomitant]
     Dosage: UNK UKN, UNK

REACTIONS (1)
  - Unresponsive to stimuli [Recovered/Resolved]
